FAERS Safety Report 18503306 (Version 3)
Quarter: 2020Q4

REPORT INFORMATION
  Report Type: Spontaneous
  Country: US (occurrence: US)
  Receive Date: 20201113
  Receipt Date: 20201123
  Transmission Date: 20210114
  Serious: No
  Sender: FDA-Public Use
  Company Number: US-PFIZER INC-2020448438

PATIENT
  Age: 46 Year
  Sex: Female

DRUGS (4)
  1. METHOTREXATE. [Suspect]
     Active Substance: METHOTREXATE
     Indication: ENTERITIS
     Dosage: UNK
     Route: 048
     Dates: start: 201812
  2. METHOTREXATE SODIUM. [Suspect]
     Active Substance: METHOTREXATE SODIUM
     Indication: ENTERITIS
     Dosage: UNK
     Route: 058
     Dates: start: 201812
  3. METHOTREXATE SODIUM. [Suspect]
     Active Substance: METHOTREXATE SODIUM
     Indication: COLITIS
  4. METHOTREXATE. [Suspect]
     Active Substance: METHOTREXATE
     Indication: COLITIS

REACTIONS (6)
  - Chills [Unknown]
  - Drug hypersensitivity [Unknown]
  - Pyrexia [Unknown]
  - Off label use [Unknown]
  - Product use in unapproved indication [Unknown]
  - Drug intolerance [Unknown]

NARRATIVE: CASE EVENT DATE: 201812
